FAERS Safety Report 5249051-8 (Version None)
Quarter: 2007Q1

REPORT INFORMATION
  Report Type: 
  Country: None (occurrence: None)
  Receive Date: 20070228
  Receipt Date: 20060627
  Transmission Date: 20070707
  Serious: No
  Sender: FDA-Public Use
  Company Number: US-GLAXOSMITHKLINE-A0609857A

PATIENT
  Age: 46 Year
  Sex: Female

DRUGS (4)
  1. VALTREX [Suspect]
     Dosage: 1G PER DAY
     Route: 048
     Dates: start: 20060602
  2. BENADRYL [Concomitant]
  3. ZYRTEC [Concomitant]
  4. PREDNISONE [Concomitant]

REACTIONS (9)
  - BONE PAIN [None]
  - DIZZINESS [None]
  - EMOTIONAL DISTRESS [None]
  - HEPATIC PAIN [None]
  - PAIN OF SKIN [None]
  - PRURITUS [None]
  - RENAL PAIN [None]
  - SKIN DISCOLOURATION [None]
  - VISUAL DISTURBANCE [None]
